FAERS Safety Report 7611465-6 (Version None)
Quarter: 2011Q3

REPORT INFORMATION
  Report Type: 
  Country: None (occurrence: None)
  Receive Date: 20110715
  Receipt Date: 20110711
  Transmission Date: 20111222
  Serious: Yes (Life-Threatening, Hospitalization)
  Sender: FDA-Public Use
  Company Number: JP-ASTRAZENECA-2011SE41339

PATIENT
  Age: 16 Year
  Sex: Male

DRUGS (3)
  1. URSO 250 [Concomitant]
  2. OMEPRAZOLE [Suspect]
     Route: 048
     Dates: end: 20110711
  3. PREDNISOLONE, DERIVATIVES AND PREPARATIONS [Concomitant]

REACTIONS (1)
  - RHABDOMYOLYSIS [None]
